FAERS Safety Report 8648985 (Version 3)
Quarter: 2013Q1

REPORT INFORMATION
  Report Type: Spontaneous
  Country: MX (occurrence: MX)
  Receive Date: 20120704
  Receipt Date: 20130315
  Transmission Date: 20140127
  Serious: Yes (Other)
  Sender: FDA-Public Use
  Company Number: PHHY2012MX051642

PATIENT
  Age: 78 Year
  Sex: Female

DRUGS (4)
  1. EXFORGE HCT [Suspect]
     Indication: HYPERTENSION
     Dosage: 1 TABLET (160MG VALS/5MG AMLO/12.5 MG HCTZ) DAILY
     Dates: start: 201006
  2. EXFORGE HCT [Suspect]
     Dosage: HALF TABLET (UNSPECIFIED) DAILY
     Dates: start: 201006
  3. ASPIRIN PROTECT [Concomitant]
     Dosage: 100 MG, DAILY
     Dates: start: 201205
  4. FORADIL [Concomitant]
     Dosage: 2 UKN, DAILY

REACTIONS (6)
  - Infarction [Recovered/Resolved]
  - Lung disorder [Recovered/Resolved]
  - Dyspnoea [Recovered/Resolved]
  - Malaise [Recovered/Resolved]
  - Nasal congestion [Recovered/Resolved]
  - Wrong technique in drug usage process [Unknown]
